FAERS Safety Report 6295355-X (Version None)
Quarter: 2009Q3

REPORT INFORMATION
  Report Type: 
  Country: None (occurrence: None)
  Receive Date: 20090803
  Receipt Date: 20090728
  Transmission Date: 20100115
  Serious: Yes (Other)
  Sender: FDA-Public Use
  Company Number: DE-AMGEN-US358088

PATIENT
  Age: 68 Year
  Sex: Female

DRUGS (2)
  1. ENBREL [Suspect]
     Indication: RHEUMATOID ARTHRITIS
     Route: 058
     Dates: start: 20060401
  2. ARAVA [Concomitant]
     Indication: RHEUMATOID ARTHRITIS
     Dosage: 20 MG/D FROM AN UNKNOWN DATE TO 2008, THEN DOSE REDUCED TO 10 MG/D
     Route: 048

REACTIONS (2)
  - ARTHRODESIS [None]
  - IMPAIRED HEALING [None]
